FAERS Safety Report 17066737 (Version 1)
Quarter: 2019Q4

REPORT INFORMATION
  Report Type: Spontaneous
  Country: SE (occurrence: SE)
  Receive Date: 20191122
  Receipt Date: 20191122
  Transmission Date: 20200122
  Serious: Yes (Hospitalization)
  Sender: FDA-Public Use
  Company Number: SE-MYLANLABS-2019M1113329

PATIENT
  Age: 44 Year
  Sex: Female

DRUGS (1)
  1. LERGIGAN (PROMETHAZINE HYDROCHLORIDE) [Suspect]
     Active Substance: PROMETHAZINE HYDROCHLORIDE
     Indication: PRODUCT USED FOR UNKNOWN INDICATION
     Dosage: 80 ST 25 MG 100 ST 50 MG
     Route: 048
     Dates: start: 20190308, end: 20190308

REACTIONS (9)
  - Intentional self-injury [Recovering/Resolving]
  - Mydriasis [Recovering/Resolving]
  - Intentional overdose [Recovering/Resolving]
  - Hyperthermia [Recovering/Resolving]
  - Myoclonus [Recovering/Resolving]
  - Delirium [Recovering/Resolving]
  - Depressed level of consciousness [Recovering/Resolving]
  - Respiratory rate increased [Recovering/Resolving]
  - Tachycardia [Recovering/Resolving]

NARRATIVE: CASE EVENT DATE: 201903
